FAERS Safety Report 5142946-5 (Version None)
Quarter: 2006Q4

REPORT INFORMATION
  Report Type: 
  Country: None (occurrence: None)
  Receive Date: 20061027
  Receipt Date: 20061018
  Transmission Date: 20070319
  Serious: Yes (Hospitalization)
  Sender: FDA-Public Use
  Company Number: 2006-149530-NL

PATIENT
  Age: 67 Year
  Sex: Female

DRUGS (1)
  1. MIRTAZAPINE [Suspect]
     Indication: DEPRESSION
     Dosage: 15 MG

REACTIONS (6)
  - BRADYKINESIA [None]
  - HYPONATRAEMIA [None]
  - MASKED FACIES [None]
  - NAUSEA [None]
  - TREMOR [None]
  - VOMITING [None]
